FAERS Safety Report 7978511-1 (Version None)
Quarter: 2011Q4

REPORT INFORMATION
  Report Type: 
  Country: None (occurrence: None)
  Receive Date: 20111214
  Receipt Date: 20111208
  Transmission Date: 20120403
  Serious: Yes (Other)
  Sender: FDA-Public Use
  Company Number: US-JNJFOC-20111204121

PATIENT
  Sex: Male
  Weight: 88.45 kg

DRUGS (4)
  1. ACCUPRIL [Concomitant]
     Indication: BLOOD PRESSURE
     Route: 048
     Dates: start: 19960101
  2. LEVAQUIN [Suspect]
     Indication: INFECTION
     Route: 065
  3. PLAQUENIL [Concomitant]
     Indication: RHEUMATOID ARTHRITIS
     Route: 065
     Dates: start: 19960101
  4. TEKTURNA [Concomitant]
     Indication: BLOOD PRESSURE
     Route: 048
     Dates: start: 19960101

REACTIONS (6)
  - RESPIRATORY DISTRESS [None]
  - INTENTIONAL DRUG MISUSE [None]
  - PALPITATIONS [None]
  - DIZZINESS [None]
  - FEELING ABNORMAL [None]
  - SYNCOPE [None]
